FAERS Safety Report 7755004-8 (Version None)
Quarter: 2011Q3

REPORT INFORMATION
  Report Type: 
  Country: None (occurrence: None)
  Receive Date: 20110916
  Receipt Date: 20110907
  Transmission Date: 20111222
  Serious: No
  Sender: FDA-Public Use
  Company Number: US-BIOGENIDEC-2011BI034282

PATIENT
  Age: 44 Year
  Sex: Male

DRUGS (1)
  1. AVONEX [Suspect]
     Indication: MULTIPLE SCLEROSIS
     Route: 030
     Dates: start: 20081231

REACTIONS (8)
  - ROAD TRAFFIC ACCIDENT [None]
  - AMNESIA [None]
  - LUMBAR VERTEBRAL FRACTURE [None]
  - CONFUSIONAL STATE [None]
  - ALOPECIA [None]
  - SPINAL FRACTURE [None]
  - MULTIPLE SCLEROSIS [None]
  - ASTHENIA [None]
